FAERS Safety Report 4821510-9 (Version None)
Quarter: 2005Q4

REPORT INFORMATION
  Report Type: 
  Country: None (occurrence: None)
  Receive Date: 20051107
  Receipt Date: 20051026
  Transmission Date: 20060501
  Serious: Yes (Death)
  Sender: FDA-Public Use
  Company Number: ES-GLAXOSMITHKLINE-B0399419A

PATIENT

DRUGS (1)
  1. CEFUROXIME AXETIL [Suspect]
     Dates: start: 20051001, end: 20051001

REACTIONS (2)
  - DRUG EXPOSURE DURING PREGNANCY [None]
  - PREMATURE LABOUR [None]
